FAERS Safety Report 11451123 (Version 1)
Quarter: 2015Q3

REPORT INFORMATION
  Report Type: Spontaneous
  Country: US (occurrence: US)
  Receive Date: 20150903
  Receipt Date: 20150903
  Transmission Date: 20151125
  Serious: Yes (Other)
  Sender: FDA-Public Use
  Company Number: US-ROCHE-1042705

PATIENT
  Sex: Female

DRUGS (5)
  1. INCIVEK [Suspect]
     Active Substance: TELAPREVIR
     Indication: CHRONIC HEPATITIS C
     Route: 065
     Dates: start: 20120219
  2. LEXAPRO [Concomitant]
     Active Substance: ESCITALOPRAM OXALATE
  3. RIBAVIRIN. [Suspect]
     Active Substance: RIBAVIRIN
     Indication: CHRONIC HEPATITIS C
     Dosage: DIVIDED DOSES
     Route: 048
     Dates: start: 20120219
  4. PEGASYS [Suspect]
     Active Substance: PEGINTERFERON ALFA-2A
     Indication: CHRONIC HEPATITIS C
     Route: 058
     Dates: start: 20120219
  5. LAMICTAL [Concomitant]
     Active Substance: LAMOTRIGINE

REACTIONS (15)
  - Chills [Unknown]
  - Pain [Unknown]
  - Injection site reaction [Unknown]
  - Fatigue [Unknown]
  - Urinary tract infection [Unknown]
  - Body temperature fluctuation [Unknown]
  - Rash pruritic [Unknown]
  - Pyrexia [Unknown]
  - Weight decreased [Unknown]
  - Anaemia [Unknown]
  - Somnolence [Unknown]
  - Myalgia [Unknown]
  - Decreased appetite [Unknown]
  - Arthralgia [Unknown]
  - Irritability [Unknown]
